FAERS Safety Report 10190663 (Version 4)
Quarter: 2015Q2

REPORT INFORMATION
  Report Type: Report from Study
  Country: BR (occurrence: BR)
  Receive Date: 20140523
  Receipt Date: 20150528
  Transmission Date: 20150821
  Serious: Yes (Hospitalization)
  Sender: FDA-Public Use
  Company Number: BR-BIOGENIDEC-2013BI102504

PATIENT
  Age: 29 Year
  Sex: Female

DRUGS (3)
  1. MESTINON [Concomitant]
     Active Substance: PYRIDOSTIGMINE BROMIDE
     Indication: MUSCULAR WEAKNESS
  2. TYSABRI [Suspect]
     Active Substance: NATALIZUMAB
     Indication: MULTIPLE SCLEROSIS
     Route: 042
     Dates: start: 20120801, end: 201304
  3. PURAN [Concomitant]
     Active Substance: LEVOTHYROXINE SODIUM
     Indication: MUSCULAR WEAKNESS

REACTIONS (3)
  - Tuberculosis [Unknown]
  - Multiple sclerosis relapse [Recovered/Resolved with Sequelae]
  - H1N1 influenza [Unknown]

NARRATIVE: CASE EVENT DATE: 2013
